FAERS Safety Report 9410444 (Version 2)
Quarter: 2013Q3

REPORT INFORMATION
  Report Type: Report from Study
  Country: CN (occurrence: CN)
  Receive Date: 20130719
  Receipt Date: 20130731
  Transmission Date: 20140515
  Serious: Yes (Hospitalization)
  Sender: FDA-Public Use
  Company Number: CN-GLAXOSMITHKLINE-Z0020296A

PATIENT
  Age: 40 Year
  Sex: Female
  Weight: 49 kg

DRUGS (1)
  1. FLUTICASONE PROPIONATE [Suspect]
     Indication: ASTHMA
     Dosage: 1MG TWICE PER DAY
     Route: 055
     Dates: start: 20130605, end: 20130628

REACTIONS (2)
  - Lung infection [Recovering/Resolving]
  - Asthma [Recovering/Resolving]
